FAERS Safety Report 9771267 (Version 1)
Quarter: 2013Q4

REPORT INFORMATION
  Report Type: Report from Study
  Country: CH (occurrence: CH)
  Receive Date: 20131218
  Receipt Date: 20131218
  Transmission Date: 20140711
  Serious: Yes (Other)
  Sender: FDA-Public Use
  Company Number: CH-B.I. PHARMACEUTICALS,INC./RIDGEFIELD-2013-BI-42312GD

PATIENT
  Age: 13 Year
  Sex: Male

DRUGS (4)
  1. DIPYRIDAMOLE [Suspect]
     Indication: ANTICOAGULANT THERAPY
     Dosage: 225 MG
  2. HEPARIN [Suspect]
     Indication: ANTICOAGULANT THERAPY
     Route: 042
  3. ACETYLSALICYLIC ACID [Suspect]
     Indication: ANTICOAGULANT THERAPY
     Dosage: 0.5 MG/KG
  4. COUMADIN [Suspect]
     Indication: ANTICOAGULANT THERAPY
     Dosage: STARTING DOSE: 0.2 MG/KG/DAY, SINGLE DOSE

REACTIONS (3)
  - Thrombosis in device [Recovered/Resolved]
  - Device related infection [Recovered/Resolved]
  - Epistaxis [Recovered/Resolved]
